FAERS Safety Report 24979005 (Version 2)
Quarter: 2025Q3

REPORT INFORMATION
  Report Type: Report from Study
  Country: US (occurrence: None)
  Receive Date: 20250218
  Receipt Date: 20250810
  Transmission Date: 20251020
  Serious: Yes (Hospitalization, Disabling, Other)
  Sender: ALEXION PHARMACEUTICALS
  Company Number: US-AstraZeneca-2014SE48424

PATIENT
  Age: 49 Year
  Sex: Female
  Weight: 74.843 kg

DRUGS (10)
  1. NEXIUM [Suspect]
     Active Substance: ESOMEPRAZOLE MAGNESIUM
     Indication: Gastrooesophageal reflux disease
     Dosage: 20 MILLIGRAM, QD
     Dates: start: 2001, end: 2009
  2. NEXIUM [Suspect]
     Active Substance: ESOMEPRAZOLE MAGNESIUM
  3. NEXIUM [Suspect]
     Active Substance: ESOMEPRAZOLE MAGNESIUM
     Dosage: 40 MILLIGRAM, QD
     Dates: start: 2004
  4. NEXIUM [Suspect]
     Active Substance: ESOMEPRAZOLE MAGNESIUM
     Dosage: 40 MILLIGRAM, QD
     Dates: start: 2009
  5. WELLBUTRIN [Concomitant]
     Active Substance: BUPROPION HYDROCHLORIDE
     Dosage: 300 MILLIGRAM, QD
     Dates: start: 2011
  6. LEXAPRO [Concomitant]
     Active Substance: ESCITALOPRAM OXALATE
     Indication: Depression
     Dosage: 20 MILLIGRAM, QD
     Dates: start: 2011
  7. ESTRACE [Concomitant]
     Active Substance: ESTRADIOL
     Dosage: 1 MILLIGRAM, QD
     Dates: start: 2010
  8. FENTANYL [Concomitant]
     Active Substance: FENTANYL
     Indication: Pain
  9. SYNTHROID [Concomitant]
     Active Substance: LEVOTHYROXINE SODIUM
     Indication: Hypothyroidism
     Dosage: 75 MICROGRAM, QD
     Dates: start: 2008
  10. FLEXERIL [Concomitant]
     Active Substance: CYCLOBENZAPRINE HYDROCHLORIDE

REACTIONS (33)
  - Nervous system disorder [Unknown]
  - Intervertebral disc degeneration [Unknown]
  - Carpal tunnel syndrome [Unknown]
  - Staphylococcal infection [Unknown]
  - Upper limb fracture [Unknown]
  - Mobility decreased [Unknown]
  - Poisoning [Unknown]
  - Adverse drug reaction [Unknown]
  - Polyarthritis [Unknown]
  - Arthropathy [Unknown]
  - Narcolepsy [Unknown]
  - Depression [Unknown]
  - Burning sensation [Unknown]
  - Gastrooesophageal reflux disease [Unknown]
  - Fatigue [Unknown]
  - Dyspepsia [Unknown]
  - Weight increased [Unknown]
  - Toothache [Unknown]
  - Obsessive-compulsive disorder [Unknown]
  - Throat irritation [Unknown]
  - Discomfort [Unknown]
  - Fibromyalgia [Unknown]
  - Malaise [Unknown]
  - Immune system disorder [Unknown]
  - Haemorrhagic disorder [Unknown]
  - Dysphagia [Unknown]
  - Hypoacusis [Unknown]
  - Asthenia [Unknown]
  - Ulcer [Unknown]
  - Dyspnoea [Unknown]
  - Palpitations [Unknown]
  - Product dose omission issue [Unknown]
  - Intentional product misuse [Unknown]

NARRATIVE: CASE EVENT DATE: 20040101
